FAERS Safety Report 21623094 (Version 1)
Quarter: 2022Q4

REPORT INFORMATION
  Report Type: Spontaneous
  Country: BG (occurrence: BG)
  Receive Date: 20221121
  Receipt Date: 20221121
  Transmission Date: 20230113
  Serious: Yes (Other)
  Sender: FDA-Public Use
  Company Number: BG-TAKEDA-2022TUS086344

PATIENT
  Age: 36 Year
  Sex: Female

DRUGS (1)
  1. ADCETRIS [Suspect]
     Active Substance: BRENTUXIMAB VEDOTIN
     Indication: Hodgkin^s disease
     Dosage: 1.8 MILLIGRAM/KILOGRAM
     Route: 065

REACTIONS (5)
  - Hypersensitivity [Unknown]
  - Tachycardia [Unknown]
  - Blood pressure decreased [Unknown]
  - Circulatory collapse [Unknown]
  - Dyspnoea [Unknown]
